FAERS Safety Report 16910431 (Version 2)
Quarter: 2019Q4

REPORT INFORMATION
  Report Type: Report from Study
  Country: None (occurrence: AR)
  Receive Date: 20191011
  Receipt Date: 20191230
  Transmission Date: 20200122
  Serious: Yes (Hospitalization)
  Sender: FDA-Public Use
  Company Number: AR-ABBVIE-19P-007-2950107-00

PATIENT
  Age: 67 Year
  Sex: Male
  Weight: 53 kg

DRUGS (6)
  1. PANTOPRAZOLE [Concomitant]
     Active Substance: PANTOPRAZOLE
     Indication: DYSPEPSIA
     Route: 048
     Dates: start: 20180418
  2. PLACEBO [Suspect]
     Active Substance: UNSPECIFIED INGREDIENT
     Indication: CROHN^S DISEASE
     Route: 042
     Dates: start: 20190328, end: 20190527
  3. RISANKIZUMAB [Suspect]
     Active Substance: RISANKIZUMAB
     Indication: CROHN^S DISEASE
     Route: 042
     Dates: start: 20190624, end: 20190822
  4. MEPREDNISONE [Concomitant]
     Active Substance: MEPREDNISONE
     Indication: CROHN^S DISEASE
     Route: 048
     Dates: start: 20181031
  5. URSODEOXYCHOLIC ACID [Concomitant]
     Active Substance: URSODIOL
     Indication: CHOLANGITIS SCLEROSING
     Route: 048
     Dates: start: 20160309
  6. CETIRIZINE [Concomitant]
     Active Substance: CETIRIZINE HYDROCHLORIDE
     Indication: PRURITUS
     Route: 048
     Dates: start: 20180418

REACTIONS (2)
  - Pneumonia staphylococcal [Not Recovered/Not Resolved]
  - Bronchopulmonary aspergillosis [Not Recovered/Not Resolved]

NARRATIVE: CASE EVENT DATE: 20191002
